FAERS Safety Report 6217887-2 (Version None)
Quarter: 2009Q2

REPORT INFORMATION
  Report Type: 
  Country: None (occurrence: None)
  Receive Date: 20090608
  Receipt Date: 20090529
  Transmission Date: 20091009
  Serious: Yes (Other)
  Sender: FDA-Public Use
  Company Number: US-PFIZER INC-2009197555

PATIENT
  Sex: Female

DRUGS (5)
  1. LYRICA [Suspect]
     Dosage: 75 MG, UNK
  2. DETROL LA [Suspect]
     Dosage: UNK
     Dates: start: 20090101
  3. TRAMADOL HYDROCHLORIDE [Suspect]
     Dosage: UNK
  4. LORTAB [Concomitant]
     Dosage: UNK
  5. HYDROCODONE [Concomitant]
     Dosage: UNK

REACTIONS (13)
  - ANGER [None]
  - ARTHRITIS [None]
  - BLISTER [None]
  - CONSTIPATION [None]
  - DRY MOUTH [None]
  - HEADACHE [None]
  - OEDEMA PERIPHERAL [None]
  - PARAESTHESIA [None]
  - RENAL DISORDER [None]
  - SKIN DISCOLOURATION [None]
  - STAPHYLOCOCCAL INFECTION [None]
  - SURGERY [None]
  - TINNITUS [None]
